FAERS Safety Report 7161004-1 (Version None)
Quarter: 2010Q4

REPORT INFORMATION
  Report Type: 
  Country: None (occurrence: None)
  Receive Date: 20101214
  Receipt Date: 20091201
  Transmission Date: 20110411
  Serious: No
  Sender: FDA-Public Use
  Company Number: US-AMGEN-KDL377885

PATIENT

DRUGS (1)
  1. ENBREL [Suspect]
     Indication: PSORIASIS
     Dosage: 50 MG, 2 TIMES/WK
     Route: 058
     Dates: start: 20090921

REACTIONS (10)
  - ERYTHEMA [None]
  - HEADACHE [None]
  - MACULE [None]
  - OEDEMA PERIPHERAL [None]
  - PAIN IN JAW [None]
  - PALMAR-PLANTAR ERYTHRODYSAESTHESIA SYNDROME [None]
  - PRURITUS [None]
  - PSORIASIS [None]
  - RASH [None]
  - SWELLING FACE [None]
